FAERS Safety Report 5830793-8 (Version None)
Quarter: 2008Q3

REPORT INFORMATION
  Report Type: 
  Country: None (occurrence: None)
  Receive Date: 20080801
  Receipt Date: 20071126
  Transmission Date: 20090109
  Serious: No
  Sender: FDA-Public Use
  Company Number: US-BRISTOL-MYERS SQUIBB COMPANY-13993381

PATIENT
  Age: 54 Year
  Sex: Female

DRUGS (2)
  1. COUMADIN [Suspect]
     Indication: THROMBOSIS
  2. SYNTHROID [Concomitant]

REACTIONS (1)
  - DYSPHAGIA [None]
